FAERS Safety Report 9260329 (Version 2)
Quarter: 2013Q2

REPORT INFORMATION
  Report Type: Report from Study
  Country: AU (occurrence: AU)
  Receive Date: 20130429
  Receipt Date: 20130513
  Transmission Date: 20140414
  Serious: Yes (Hospitalization)
  Sender: FDA-Public Use
  Company Number: PHHY2013AU041399

PATIENT
  Age: 58 Year
  Sex: Female

DRUGS (8)
  1. CLOZARIL [Suspect]
     Dosage: 450 MG, DAILY
     Dates: start: 20100127
  2. ANTIDEPRESSANTS [Concomitant]
     Dosage: UNK
  3. SIMVASTATIN [Concomitant]
     Dosage: 20 MG, NOCTE
     Route: 048
  4. SODIUM VALPROATE [Concomitant]
     Dosage: 1 G, BD
     Route: 048
  5. QUETIAPINE [Concomitant]
     Dosage: 200MG MORN AND 400MG NOCTE
  6. ESOMEPRAZOLO [Concomitant]
     Dosage: 20 MG, DAILY
  7. AMLODIPINE [Concomitant]
     Dosage: 5 MG, MANE
     Route: 048
  8. THYROXINE [Concomitant]
     Dosage: 100 MG, MANE
     Route: 048

REACTIONS (3)
  - General physical health deterioration [Recovered/Resolved]
  - Anxiety [Recovered/Resolved]
  - Antipsychotic drug level increased [Unknown]
